FAERS Safety Report 22270940 (Version 3)
Quarter: 2023Q2

REPORT INFORMATION
  Report Type: Report from Study
  Country: IT (occurrence: IT)
  Receive Date: 20230501
  Receipt Date: 20230616
  Transmission Date: 20230721
  Serious: Yes (Death)
  Sender: FDA-Public Use
  Company Number: IT-002147023-NVSC2023IT098579

PATIENT
  Age: 46 Year
  Sex: Male
  Weight: 69 kg

DRUGS (2)
  1. DABRAFENIB [Suspect]
     Active Substance: DABRAFENIB
     Indication: Rhabdoid tumour
     Dosage: 150 MG, BID
     Route: 048
     Dates: start: 20220909, end: 20230114
  2. MEKINIST [Suspect]
     Active Substance: TRAMETINIB DIMETHYL SULFOXIDE
     Indication: Rhabdoid tumour
     Dosage: 2 MG, QD
     Route: 048
     Dates: start: 20220909, end: 20230114

REACTIONS (2)
  - Rhabdoid tumour [Fatal]
  - Malignant neoplasm progression [Fatal]

NARRATIVE: CASE EVENT DATE: 20230115
